FAERS Safety Report 7933103 (Version 3)
Quarter: 2014Q1

REPORT INFORMATION
  Report Type: Spontaneous
  Country: US (occurrence: US)
  Receive Date: 20110506
  Receipt Date: 20140205
  Transmission Date: 20141002
  Serious: Yes (Hospitalization)
  Sender: FDA-Public Use
  Company Number: US-BAYER-2011-038355

PATIENT
  Age: 22 Year
  Sex: Female
  Weight: 91 kg

DRUGS (1)
  1. YASMIN [Suspect]
     Indication: ORAL CONTRACEPTION
     Dosage: UNK
     Route: 048
     Dates: start: 20030904, end: 200709

REACTIONS (7)
  - Cholelithiasis [None]
  - Pain [None]
  - Anxiety [None]
  - Fear [None]
  - Anhedonia [None]
  - Quality of life decreased [None]
  - Cholecystitis acute [None]
